FAERS Safety Report 4829180-0 (Version None)
Quarter: 2005Q4

REPORT INFORMATION
  Report Type: 
  Country: None (occurrence: None)
  Receive Date: 20051027
  Receipt Date: 20050309
  Transmission Date: 20060501
  Serious: Yes (Other)
  Sender: FDA-Public Use
  Company Number: HQWYE588625AUG04

PATIENT
  Sex: Female
  Weight: 79.45 kg

DRUGS (4)
  1. PREMARIN [Suspect]
     Dosage: UNSPECIFIED; ORAL
     Route: 048
     Dates: start: 19920101, end: 20040101
  2. ESTRACE [Suspect]
  3. VIVELLE [Suspect]
     Indication: MENOPAUSAL SYMPTOMS PROPHYLAXIS
     Dosage: ORAL
     Route: 048
     Dates: start: 19990101
  4. XANAX [Concomitant]

REACTIONS (1)
  - OVARIAN CANCER [None]
